FAERS Safety Report 15571736 (Version 4)
Quarter: 2018Q4

REPORT INFORMATION
  Report Type: Spontaneous
  Country: AU (occurrence: AU)
  Receive Date: 20181031
  Receipt Date: 20181102
  Transmission Date: 20190205
  Serious: Yes (Other)
  Sender: FDA-Public Use
  Company Number: PHHY2018AU138340

PATIENT
  Age: 89 Year
  Sex: Male

DRUGS (4)
  1. CALCIUM [Concomitant]
     Active Substance: CALCIUM
     Indication: OSTEOPOROSIS
     Dosage: UNK
     Route: 065
  2. AMLODIPINE [Concomitant]
     Active Substance: AMLODIPINE BESYLATE
     Indication: HYPERTENSION
     Dosage: UNK
     Route: 065
  3. CHOLECALCIFEROL [Concomitant]
     Active Substance: CHOLECALCIFEROL
     Indication: OSTEOPOROSIS
     Dosage: UNK
     Route: 065
  4. PREDNISOLONE. [Suspect]
     Active Substance: PREDNISOLONE
     Indication: POLYMYALGIA RHEUMATICA
     Dosage: 10 MG, QD
     Route: 065

REACTIONS (5)
  - Hyperglycaemia [Recovering/Resolving]
  - Hyperglycaemic hyperosmolar nonketotic syndrome [Recovering/Resolving]
  - Steroid diabetes [Recovering/Resolving]
  - Ballismus [Recovering/Resolving]
  - Dyskinesia [Recovering/Resolving]
